FAERS Safety Report 12050921 (Version 1)
Quarter: 2016Q1

REPORT INFORMATION
  Report Type: Spontaneous
  Country: US (occurrence: None)
  Receive Date: 20160208
  Receipt Date: 20160208
  Transmission Date: 20160526
  Serious: No
  Sender: FDA-Public Use
  Company Number: None

PATIENT
  Age: 22 Year
  Sex: Female
  Weight: 122.47 kg

DRUGS (1)
  1. NEXPLANON [Suspect]
     Active Substance: ETONOGESTREL

REACTIONS (8)
  - Mood swings [None]
  - Depression [None]
  - Feeling abnormal [None]
  - Hot flush [None]
  - Nausea [None]
  - Influenza like illness [None]
  - Migraine [None]
  - Anxiety [None]

NARRATIVE: CASE EVENT DATE: 20160204
